FAERS Safety Report 7448150-X (Version None)
Quarter: 2011Q2

REPORT INFORMATION
  Report Type: 
  Country: None (occurrence: None)
  Receive Date: 20110429
  Receipt Date: 20100308
  Transmission Date: 20111010
  Serious: No
  Sender: FDA-Public Use
  Company Number: US-ASTRAZENECA-2010SE10100

PATIENT
  Sex: Male
  Weight: 95.3 kg

DRUGS (2)
  1. IBUPROFEN [Concomitant]
  2. NEXIUM [Suspect]
     Route: 048
     Dates: start: 20091001

REACTIONS (2)
  - ERUCTATION [None]
  - BREATH ODOUR [None]
